FAERS Safety Report 21632980 (Version 1)
Quarter: 2022Q4

REPORT INFORMATION
  Report Type: Report from Study
  Country: IT (occurrence: IT)
  Receive Date: 20221123
  Receipt Date: 20221123
  Transmission Date: 20230112
  Serious: Yes (Hospitalization, Other)
  Sender: FDA-Public Use
  Company Number: IT-ORPHANEU-2022005855

PATIENT

DRUGS (7)
  1. CARBAGLU [Suspect]
     Active Substance: CARGLUMIC ACID
     Indication: Product used for unknown indication
     Dosage: UNK
  2. CARBAGLU [Suspect]
     Active Substance: CARGLUMIC ACID
     Dosage: 150 MILLIGRAM, TID
     Dates: start: 20200102
  3. CARNITINE [Concomitant]
     Active Substance: CARNITINE
     Indication: Product used for unknown indication
     Dosage: 850 MILLIGRAM, TID
     Dates: start: 20180923
  4. METRONIDAZOLE [Concomitant]
     Active Substance: METRONIDAZOLE
     Indication: Prophylaxis
     Dosage: 100 MILLIGRAM X 2 10 D/M
     Dates: start: 20180930, end: 202001
  5. PHENOBARBITAL [Concomitant]
     Active Substance: PHENOBARBITAL
     Indication: Seizure
     Dosage: 15 MG + 30 MG
     Dates: start: 20190501
  6. CARBAMAZEPINE [Concomitant]
     Active Substance: CARBAMAZEPINE
     Indication: Seizure
     Dosage: 6 MILLILITER, TID
     Dates: start: 20190911, end: 20200115
  7. FOLIC ACID [Concomitant]
     Active Substance: FOLIC ACID
     Indication: Product used for unknown indication
     Dosage: 7.5 MILLIGRAM, Q2W
     Dates: start: 20181112

REACTIONS (4)
  - Feeding disorder [Recovered/Resolved]
  - Seizure [Recovered/Resolved]
  - Pyrexia [Recovered/Resolved]
  - Vomiting [Recovered/Resolved]

NARRATIVE: CASE EVENT DATE: 20200102
